FAERS Safety Report 9614536 (Version 1)
Quarter: 2013Q4

REPORT INFORMATION
  Report Type: Spontaneous
  Country: AU (occurrence: AU)
  Receive Date: 20131011
  Receipt Date: 20131011
  Transmission Date: 20140711
  Serious: Yes (Other)
  Sender: FDA-Public Use
  Company Number: PHHY2013AU114001

PATIENT
  Sex: Male

DRUGS (2)
  1. STALEVO [Suspect]
     Dosage: UNK UKN, UNK
  2. SIFROL [Suspect]
     Dosage: UNK UKN, UNK

REACTIONS (1)
  - Basal cell carcinoma [Unknown]
